FAERS Safety Report 10207546 (Version 1)
Quarter: 2014Q2

REPORT INFORMATION
  Report Type: Spontaneous
  Country: US (occurrence: US)
  Receive Date: 20140530
  Receipt Date: 20140530
  Transmission Date: 20141212
  Serious: No
  Sender: FDA-Public Use
  Company Number: US-PFIZER INC-2014146183

PATIENT
  Age: 52 Year
  Sex: Female

DRUGS (2)
  1. GENOTROPIN MQ [Suspect]
     Indication: BLOOD GROWTH HORMONE DECREASED
     Dosage: 0.2 MG, 1X/DAY
     Dates: end: 2013
  2. GENOTROPIN MQ [Suspect]
     Dosage: 0.2 MG, 1X/DAY
     Dates: start: 201404

REACTIONS (4)
  - Drug ineffective [Unknown]
  - Headache [Unknown]
  - Pyrexia [Unknown]
  - Inflammation [Unknown]
